FAERS Safety Report 16747495 (Version 3)
Quarter: 2020Q1

REPORT INFORMATION
  Report Type: Spontaneous
  Country: US (occurrence: US)
  Receive Date: 20190827
  Receipt Date: 20200102
  Transmission Date: 20200409
  Serious: Yes (Other)
  Sender: FDA-Public Use
  Company Number: US-BAYER-2019-157445

PATIENT
  Age: 36 Year
  Sex: Female
  Weight: 97 kg

DRUGS (6)
  1. MIRENA [Suspect]
     Active Substance: LEVONORGESTREL
     Indication: CONTRACEPTION
     Dosage: 20 MCG/24HR, CONT
     Route: 015
     Dates: start: 20190820
  2. MIRENA [Suspect]
     Active Substance: LEVONORGESTREL
     Indication: CONTRACEPTION
  3. MIRENA [Suspect]
     Active Substance: LEVONORGESTREL
     Indication: CONTRACEPTION
     Dosage: 20 MCG/24HR, CONT
     Route: 015
     Dates: start: 20190813, end: 20190820
  4. ORTHO MICRONOR [Concomitant]
     Active Substance: NORETHINDRONE
     Dosage: 1 DF, QD
     Dates: start: 20190910
  5. PRENATAL [ASCORBIC ACID;CALCIUM GLUCONATE;CUPRIC CARBONATE, BASIC; [Concomitant]
  6. KETOROLAC [Concomitant]
     Active Substance: KETOROLAC TROMETHAMINE
     Dosage: 30 MG/ML
     Route: 042
     Dates: start: 20190912

REACTIONS (3)
  - Abdominal pain [None]
  - Device dislocation [Recovered/Resolved]
  - Device expulsion [Recovered/Resolved]

NARRATIVE: CASE EVENT DATE: 20190813
